FAERS Safety Report 12886549 (Version 2)
Quarter: 2016Q4

REPORT INFORMATION
  Report Type: Spontaneous
  Country: IR (occurrence: IR)
  Receive Date: 20161026
  Receipt Date: 20161028
  Transmission Date: 20170207
  Serious: Yes (Death, Hospitalization)
  Sender: FDA-Public Use
  Company Number: IR-SA-2016SA195059

PATIENT
  Age: 54 Year
  Sex: Male

DRUGS (10)
  1. OMEPRAZOLE. [Suspect]
     Active Substance: OMEPRAZOLE
     Route: 065
  2. EPINEPHRINE. [Suspect]
     Active Substance: EPINEPHRINE
     Route: 065
  3. INSULIN [Concomitant]
     Active Substance: INSULIN NOS
     Indication: DIABETES MELLITUS
  4. PREDNISOLONE. [Suspect]
     Active Substance: PREDNISOLONE
     Route: 065
  5. MEROPENEM. [Suspect]
     Active Substance: MEROPENEM
     Route: 065
  6. TRIMETHOPRIM/SULFAMETHOXAZOLE [Suspect]
     Active Substance: SULFAMETHOXAZOLE\TRIMETHOPRIM
     Route: 065
  7. AZATHIOPRINE. [Suspect]
     Active Substance: AZATHIOPRINE
     Route: 065
  8. ACICLOVIR [Suspect]
     Active Substance: ACYCLOVIR
     Indication: ANTIVIRAL TREATMENT
     Route: 042
  9. AMIKACIN SULFATE. [Suspect]
     Active Substance: AMIKACIN SULFATE
     Route: 065
  10. AMPICILLIN [Suspect]
     Active Substance: AMPICILLIN
     Route: 065

REACTIONS (28)
  - Vomiting [Fatal]
  - Decreased appetite [Fatal]
  - Dyspnoea [Fatal]
  - Respiratory alkalosis [Fatal]
  - C-reactive protein increased [Fatal]
  - Abdominal pain [Fatal]
  - Blood potassium decreased [Fatal]
  - Blood albumin decreased [Fatal]
  - Blood lactate dehydrogenase increased [Fatal]
  - Constipation [Fatal]
  - Respiratory rate decreased [Fatal]
  - Headache [Fatal]
  - Abdominal distension [Fatal]
  - Haematemesis [Fatal]
  - Heart rate increased [Fatal]
  - Gastritis erosive [None]
  - Lipase increased [Fatal]
  - Blood sodium decreased [Fatal]
  - Nausea [Fatal]
  - Weight decreased [Fatal]
  - Aspartate aminotransferase increased [None]
  - Strongyloidiasis [Fatal]
  - Amylase increased [Fatal]
  - Diarrhoea [Fatal]
  - Blood alkaline phosphatase increased [None]
  - Blood cortisol increased [Fatal]
  - Alanine aminotransferase increased [None]
  - Hypothermia [Fatal]
